FAERS Safety Report 5148853-6 (Version None)
Quarter: 2006Q4

REPORT INFORMATION
  Report Type: 
  Country: None (occurrence: None)
  Receive Date: 20061108
  Receipt Date: 20061030
  Transmission Date: 20070319
  Serious: Yes (Other)
  Sender: FDA-Public Use
  Company Number: 2006133840

PATIENT
  Sex: Male

DRUGS (2)
  1. CELEBREX [Suspect]
     Dosage: ORAL
     Route: 048
     Dates: start: 20010913
  2. VIOXX [Suspect]
     Dosage: ORAL
     Route: 048
     Dates: start: 19990923, end: 20010730

REACTIONS (3)
  - CAROTID ARTERY ANEURYSM [None]
  - CEREBRAL INFARCTION [None]
  - INTRACRANIAL ANEURYSM [None]
